FAERS Safety Report 8395776-5 (Version None)
Quarter: 2012Q2

REPORT INFORMATION
  Report Type: 
  Country: None (occurrence: None)
  Receive Date: 20120525
  Receipt Date: 20120525
  Transmission Date: 20120825
  Serious: Yes (Hospitalization, Disabling, Other)
  Sender: FDA-Public Use
  Company Number: None

PATIENT
  Age: 48 Year
  Sex: Female

DRUGS (1)
  1. PRED FORTE [Suspect]
     Indication: IRITIS
     Dosage: ONCE GTT QH OS
     Dates: start: 20120521

REACTIONS (1)
  - IRITIS [None]
